FAERS Safety Report 8474126-X (Version None)
Quarter: 2012Q2

REPORT INFORMATION
  Report Type: 
  Country: None (occurrence: None)
  Receive Date: 20120622
  Receipt Date: 20120622
  Transmission Date: 20120825
  Serious: Yes (Other)
  Sender: FDA-Public Use
  Company Number: None

PATIENT

DRUGS (1)
  1. EDARBYCLOR [Suspect]
     Indication: HYPERTENSION
     Dosage: 1 PILL DAILY PO
     Route: 048
     Dates: start: 20120521, end: 20120525

REACTIONS (8)
  - FATIGUE [None]
  - DYSSTASIA [None]
  - DIZZINESS [None]
  - NAUSEA [None]
  - HEART RATE INCREASED [None]
  - MYALGIA [None]
  - ASTHENIA [None]
  - HYPERHIDROSIS [None]
